FAERS Safety Report 8523259-8 (Version None)
Quarter: 2012Q3

REPORT INFORMATION
  Report Type: 
  Country: None (occurrence: None)
  Receive Date: 20120720
  Receipt Date: 20120705
  Transmission Date: 20120928
  Serious: Yes (Hospitalization, Other)
  Sender: FDA-Public Use
  Company Number: NO-JNJFOC-20090708305

PATIENT
  Age: 5 Decade
  Sex: Male

DRUGS (4)
  1. RISPERDAL CONSTA [Suspect]
     Indication: PRODUCT USED FOR UNKNOWN INDICATION
     Dosage: SINCE SOME YEARS
     Route: 030
  2. RISPERDAL CONSTA [Suspect]
     Dosage: DOSE DECREASED ABOUT 2 YEARS BEFORE THIS REPORT
     Route: 030
  3. ABILIFY [Concomitant]
     Indication: PRODUCT USED FOR UNKNOWN INDICATION
     Route: 065
  4. RISPERDAL CONSTA [Suspect]
     Dosage: DOSE DECREASED ABOUT 6 MONTHS BEFORE THIS REPORT
     Route: 030

REACTIONS (5)
  - HOSPITALISATION [None]
  - DRUG INEFFECTIVE [None]
  - COMA [None]
  - VERBAL ABUSE [None]
  - FEELING ABNORMAL [None]
